FAERS Safety Report 22207593 (Version 2)
Quarter: 2023Q2

REPORT INFORMATION
  Report Type: Spontaneous
  Country: US (occurrence: US)
  Receive Date: 20230413
  Receipt Date: 20230414
  Transmission Date: 20230721
  Serious: Yes (Other)
  Sender: FDA-Public Use
  Company Number: US-PFIZER INC-PV202300066838

PATIENT
  Sex: Male

DRUGS (1)
  1. TESSALON [Suspect]
     Active Substance: BENZONATATE
     Dosage: TAKEN FOR 20 YEARS

REACTIONS (1)
  - Blindness [Unknown]
